FAERS Safety Report 18790943 (Version 1)
Quarter: 2021Q1

REPORT INFORMATION
  Report Type: Spontaneous
  Country: US (occurrence: US)
  Receive Date: 20210126
  Receipt Date: 20210126
  Transmission Date: 20210419
  Serious: No
  Sender: FDA-Public Use
  Company Number: US-VERTEX PHARMACEUTICALS-2021-000793

PATIENT
  Age: 24 Year
  Sex: Female

DRUGS (2)
  1. TRIKAFTA [Suspect]
     Active Substance: ELEXACAFTOR\IVACAFTOR\TEZACAFTOR
     Indication: CYSTIC FIBROSIS
     Dosage: 100 MG ELEXACAFTOR/ 50 MG TEZACAFTOR/ 75 MG IVACAFTOR; 150MG IVACAFTOR, UNK FREQ
     Route: 048
     Dates: start: 20200124
  2. BIOTIN [Concomitant]
     Active Substance: BIOTIN

REACTIONS (4)
  - Eye swelling [Unknown]
  - Visual acuity reduced [Unknown]
  - Rash pustular [Unknown]
  - Lenticular opacities [Unknown]

NARRATIVE: CASE EVENT DATE: 2020
